FAERS Safety Report 25484376 (Version 1)
Quarter: 2025Q2

REPORT INFORMATION
  Report Type: Spontaneous
  Country: US (occurrence: US)
  Receive Date: 20250626
  Receipt Date: 20250626
  Transmission Date: 20250716
  Serious: No
  Sender: SANOFI AVENTIS
  Company Number: US-SA-2025SA179699

PATIENT
  Age: 61 Year
  Sex: Male

DRUGS (27)
  1. REZUROCK [Suspect]
     Active Substance: BELUMOSUDIL
     Indication: Chronic graft versus host disease
     Dosage: 200 MG, QD
     Route: 048
  2. AMLODIPINE BESYLATE [Concomitant]
     Active Substance: AMLODIPINE BESYLATE
  3. ATOVAQUONE [Concomitant]
     Active Substance: ATOVAQUONE
  4. CRESTOR [Concomitant]
     Active Substance: ROSUVASTATIN CALCIUM
  5. FLUTICASONE PROPIONATE [Concomitant]
     Active Substance: FLUTICASONE PROPIONATE
  6. MELATONIN [Concomitant]
     Active Substance: MELATONIN
  7. VITAMIN B12 [Concomitant]
     Active Substance: CYANOCOBALAMIN
  8. DOXYCYCLINE HYCLATE [Concomitant]
     Active Substance: DOXYCYCLINE HYCLATE
  9. FENOFIBRATE [Concomitant]
     Active Substance: FENOFIBRATE
  10. VITAMIN D3 [Concomitant]
     Active Substance: CHOLECALCIFEROL
  11. HYDROCORTISONE [Concomitant]
     Active Substance: HYDROCORTISONE
  12. LEVOTHYROXINE [Concomitant]
     Active Substance: LEVOTHYROXINE
  13. LORATADINE [Concomitant]
     Active Substance: LORATADINE
  14. MAGNESIUM OXIDE [Concomitant]
     Active Substance: MAGNESIUM OXIDE
  15. METOPROLOL SUCCINATE [Concomitant]
     Active Substance: METOPROLOL SUCCINATE
  16. MONTELUKAST [Concomitant]
     Active Substance: MONTELUKAST
  17. OLMESARTAN [Concomitant]
     Active Substance: OLMESARTAN
  18. OMEGA 3 [Concomitant]
     Active Substance: CAPSAICIN
  19. OMEPRAZOLE [Concomitant]
     Active Substance: OMEPRAZOLE
  20. POSACONAZOLE [Concomitant]
     Active Substance: POSACONAZOLE
  21. RAPAMUNE [Concomitant]
     Active Substance: SIROLIMUS
  22. SPIRONOLACTONE [Concomitant]
     Active Substance: SPIRONOLACTONE
  23. TADALAFIL [Concomitant]
     Active Substance: TADALAFIL
  24. URSODIOL [Concomitant]
     Active Substance: URSODIOL
  25. VALTREX [Concomitant]
     Active Substance: VALACYCLOVIR HYDROCHLORIDE
  26. ZYRTEC [Concomitant]
     Active Substance: CETIRIZINE HYDROCHLORIDE
  27. ADVAIR HFA [Concomitant]
     Active Substance: FLUTICASONE PROPIONATE\SALMETEROL XINAFOATE

REACTIONS (2)
  - Solar lentigo [Recovered/Resolved]
  - Inappropriate schedule of product administration [Unknown]
